FAERS Safety Report 20116625 (Version 13)
Quarter: 2023Q2

REPORT INFORMATION
  Report Type: Report from Study
  Country: US (occurrence: None)
  Receive Date: 20211126
  Receipt Date: 20230511
  Transmission Date: 20230722
  Serious: Yes (Hospitalization)
  Sender: FDA-Public Use
  Company Number: US-ROCHE-2963208

PATIENT
  Age: 82 Year
  Sex: Male
  Weight: 74.7 kg

DRUGS (58)
  1. MOSUNETUZUMAB [Suspect]
     Active Substance: MOSUNETUZUMAB
     Indication: B-cell lymphoma
     Dosage: ON 28/OCT/2021, THE PATIENT RECEIVED MOST RECENT DOSE OF MOSUNETUZUMAB (45 MG) PRIOR TO SAE ONSET.
     Route: 058
     Dates: start: 20211008
  2. POLATUZUMAB VEDOTIN [Suspect]
     Active Substance: POLATUZUMAB VEDOTIN
     Indication: B-cell lymphoma
     Dosage: ON 28/OCT/2021, THE PATIENT RECEIVED MOST RECENT DOSE OF POLATUZUMAB VEDOTIN (152 MG) PRIOR TO SAE O
     Route: 042
     Dates: start: 20211008
  3. ALLOPURINOL [Concomitant]
     Active Substance: ALLOPURINOL
     Route: 048
     Dates: start: 20210828
  4. AMLODIPINE [Concomitant]
     Active Substance: AMLODIPINE BESYLATE
     Route: 048
     Dates: start: 20160127
  5. AMLODIPINE [Concomitant]
     Active Substance: AMLODIPINE BESYLATE
     Route: 048
     Dates: start: 20211109, end: 20211112
  6. BISACODYL [Concomitant]
     Active Substance: BISACODYL
     Route: 048
     Dates: start: 20191211
  7. CARVEDILOL [Concomitant]
     Active Substance: CARVEDILOL
     Route: 048
     Dates: start: 20140630
  8. CARVEDILOL [Concomitant]
     Active Substance: CARVEDILOL
     Route: 048
     Dates: start: 20211108, end: 20211112
  9. CARVEDILOL [Concomitant]
     Active Substance: CARVEDILOL
     Route: 048
     Dates: start: 20211118, end: 20211120
  10. FINASTERIDE [Concomitant]
     Active Substance: FINASTERIDE
     Route: 048
     Dates: start: 20140630
  11. INSULIN ASPART [Concomitant]
     Active Substance: INSULIN ASPART
     Dosage: 2 U
     Route: 058
     Dates: start: 201401
  12. LISINOPRIL [Concomitant]
     Active Substance: LISINOPRIL
     Route: 048
     Dates: start: 20160127
  13. LISINOPRIL [Concomitant]
     Active Substance: LISINOPRIL
     Route: 048
     Dates: start: 20211108, end: 20211112
  14. METFORMIN [Concomitant]
     Active Substance: METFORMIN HYDROCHLORIDE
     Route: 048
     Dates: start: 20140630
  15. METFORMIN [Concomitant]
     Active Substance: METFORMIN HYDROCHLORIDE
     Route: 048
     Dates: start: 20211108, end: 20211108
  16. DIPHENHYDRAMINE [Concomitant]
     Active Substance: DIPHENHYDRAMINE
     Route: 042
     Dates: start: 20211022, end: 20211022
  17. DIPHENHYDRAMINE [Concomitant]
     Active Substance: DIPHENHYDRAMINE
     Route: 042
     Dates: start: 20211028, end: 20211028
  18. DEXAMETHASONE [Concomitant]
     Active Substance: DEXAMETHASONE
     Route: 042
     Dates: start: 20211022, end: 20211022
  19. DEXAMETHASONE [Concomitant]
     Active Substance: DEXAMETHASONE
     Route: 042
     Dates: start: 20211028, end: 20211028
  20. ACETAMINOPHEN [Concomitant]
     Active Substance: ACETAMINOPHEN
     Route: 042
     Dates: start: 20211022, end: 20211022
  21. ACETAMINOPHEN [Concomitant]
     Active Substance: ACETAMINOPHEN
     Route: 048
     Dates: start: 20211028, end: 20211028
  22. VANCOMYCIN [Concomitant]
     Active Substance: VANCOMYCIN
     Route: 042
     Dates: start: 20211108, end: 20211108
  23. VANCOMYCIN [Concomitant]
     Active Substance: VANCOMYCIN
     Route: 042
     Dates: start: 20211109, end: 20211109
  24. VANCOMYCIN [Concomitant]
     Active Substance: VANCOMYCIN
     Route: 042
     Dates: start: 20211118, end: 20211118
  25. ONDANSETRON [Concomitant]
     Active Substance: ONDANSETRON
     Route: 042
     Dates: start: 20211108, end: 20211110
  26. ONDANSETRON [Concomitant]
     Active Substance: ONDANSETRON
     Route: 048
     Dates: start: 20211108
  27. INSULIN LISPRO [Concomitant]
     Active Substance: INSULIN LISPRO
     Route: 058
     Dates: start: 20211108, end: 20211108
  28. INSULIN LISPRO [Concomitant]
     Active Substance: INSULIN LISPRO
     Dosage: 8 U
     Route: 058
     Dates: start: 20211109, end: 20211109
  29. FUROSEMIDE [Concomitant]
     Active Substance: FUROSEMIDE
     Route: 048
     Dates: start: 20211112, end: 20211112
  30. FUROSEMIDE [Concomitant]
     Active Substance: FUROSEMIDE
     Route: 048
     Dates: start: 20211028, end: 20211112
  31. FUROSEMIDE [Concomitant]
     Active Substance: FUROSEMIDE
     Route: 042
     Dates: start: 20211118, end: 20211119
  32. CEFEPIME [Concomitant]
     Active Substance: CEFEPIME HYDROCHLORIDE
     Route: 042
     Dates: start: 20211108, end: 20211108
  33. CEFEPIME [Concomitant]
     Active Substance: CEFEPIME HYDROCHLORIDE
     Route: 042
     Dates: start: 20211118, end: 20211119
  34. MORPHINE [Concomitant]
     Active Substance: MORPHINE
     Route: 048
     Dates: start: 20211108, end: 20211112
  35. LIDOCAINE [Concomitant]
     Active Substance: LIDOCAINE
     Dates: start: 20211108, end: 20211108
  36. LIDOCAINE [Concomitant]
     Active Substance: LIDOCAINE
     Route: 058
     Dates: start: 20211103, end: 20211103
  37. KETOROLAC [Concomitant]
     Active Substance: KETOROLAC TROMETHAMINE
     Route: 042
     Dates: start: 20211108, end: 20211108
  38. INSULIN NOS [Concomitant]
     Active Substance: INSULIN NOS
     Dosage: 10 U
     Route: 058
     Dates: start: 20211108, end: 20211108
  39. VALACYCLOVIR [Concomitant]
     Active Substance: VALACYCLOVIR HYDROCHLORIDE
     Route: 048
     Dates: start: 20211109, end: 20211110
  40. VALACYCLOVIR [Concomitant]
     Active Substance: VALACYCLOVIR HYDROCHLORIDE
     Route: 048
     Dates: start: 20210824, end: 20211112
  41. PIPERACILLIN SODIUM\TAZOBACTAM SODIUM [Concomitant]
     Active Substance: PIPERACILLIN SODIUM\TAZOBACTAM SODIUM
     Route: 048
     Dates: start: 20211109, end: 20211109
  42. CEFTRIAXONE [Concomitant]
     Active Substance: CEFTRIAXONE
     Route: 042
     Dates: start: 20211109, end: 20211111
  43. VALGANCICLOVIR HYDROCHLORIDE [Concomitant]
     Active Substance: VALGANCICLOVIR HYDROCHLORIDE
     Route: 048
     Dates: start: 20211113, end: 20211123
  44. ENOXAPARIN [Concomitant]
     Active Substance: ENOXAPARIN
     Route: 058
     Dates: start: 20211118, end: 20211120
  45. LOPERAMIDE [Concomitant]
     Active Substance: LOPERAMIDE
     Route: 048
     Dates: start: 20210903, end: 20211028
  46. TAMSULOSIN [Concomitant]
     Active Substance: TAMSULOSIN
     Route: 048
     Dates: start: 2013
  47. SODIUM CHLORIDE [Concomitant]
     Active Substance: SODIUM CHLORIDE
     Route: 042
     Dates: start: 20211103, end: 20211103
  48. FENTANYL [Concomitant]
     Active Substance: FENTANYL
     Route: 042
     Dates: start: 20211103, end: 20211103
  49. MIDAZOLAM [Concomitant]
     Active Substance: MIDAZOLAM
     Route: 042
     Dates: start: 20211103, end: 20211103
  50. INSULIN NOS [Concomitant]
     Active Substance: INSULIN NOS
     Dosage: 10 U
     Route: 058
     Dates: start: 20211108, end: 20211108
  51. ENOXAPARIN [Concomitant]
     Active Substance: ENOXAPARIN
     Route: 058
     Dates: start: 20211118, end: 20211118
  52. MAGNESIUM SULFATE [Concomitant]
     Active Substance: MAGNESIUM SULFATE
     Dosage: 16 OTHER
     Route: 042
     Dates: start: 20211109, end: 20211109
  53. GANCICLOVIR [Concomitant]
     Active Substance: GANCICLOVIR
     Route: 042
     Dates: start: 20211110, end: 20211112
  54. INSULIN GLARGINE [Concomitant]
     Active Substance: INSULIN GLARGINE
     Dosage: 100U
     Route: 058
     Dates: start: 20211109, end: 20211119
  55. GUAIFENESIN [Concomitant]
     Active Substance: GUAIFENESIN
     Route: 048
     Dates: start: 20211110, end: 20211112
  56. GLUCOPHAGE [Concomitant]
     Active Substance: METFORMIN HYDROCHLORIDE
     Dates: start: 20211110
  57. BACTRIM [Concomitant]
     Active Substance: SULFAMETHOXAZOLE\TRIMETHOPRIM
     Route: 048
     Dates: start: 20211108, end: 20211112
  58. TRAMADOL [Concomitant]
     Active Substance: TRAMADOL
     Route: 048
     Dates: start: 20210823, end: 20220314

REACTIONS (1)
  - Atrial fibrillation [Recovered/Resolved]

NARRATIVE: CASE EVENT DATE: 20211117
